FAERS Safety Report 5519035-0 (Version None)
Quarter: 2007Q4

REPORT INFORMATION
  Report Type: 
  Country: None (occurrence: None)
  Receive Date: 20071116
  Receipt Date: 20071112
  Transmission Date: 20080405
  Serious: Yes (Hospitalization, Other)
  Sender: FDA-Public Use
  Company Number: PHRM2007FR02582

PATIENT
  Age: 74 Year
  Sex: Male

DRUGS (5)
  1. PROPOFAN [Concomitant]
  2. PARACETAMOL [Concomitant]
  3. ROCGEL [Concomitant]
  4. PERIDYS [Concomitant]
  5. EXFORGE [Suspect]
     Indication: HYPERTENSION
     Dosage: 1 DF, QD
     Route: 048
     Dates: start: 20070901

REACTIONS (2)
  - ACUTE CORONARY SYNDROME [None]
  - CORONARY ANGIOPLASTY [None]
